FAERS Safety Report 12055657 (Version 1)
Quarter: 2016Q1

REPORT INFORMATION
  Report Type: Report from Study
  Country: ES (occurrence: ES)
  Receive Date: 20160209
  Receipt Date: 20160209
  Transmission Date: 20160526
  Serious: Yes (Hospitalization)
  Sender: FDA-Public Use
  Company Number: ES-BRISTOL-MYERS SQUIBB COMPANY-BMS-2016-005854

PATIENT
  Age: 63 Year
  Sex: Male
  Weight: 70.5 kg

DRUGS (3)
  1. EXTERNAL-VELIPARIB [Suspect]
     Active Substance: VELIPARIB
     Indication: SMALL CELL LUNG CANCER
     Dosage: 240 MG, BID
     Route: 048
     Dates: start: 20151219
  2. CARBOPLATIN. [Suspect]
     Active Substance: CARBOPLATIN
     Indication: SMALL CELL LUNG CANCER
     Dosage: 1 DF, QCYCLE
     Route: 042
     Dates: start: 20151221
  3. ETOPOSIDE. [Suspect]
     Active Substance: ETOPOSIDE
     Indication: SMALL CELL LUNG CANCER
     Dosage: 100 MG/M2, QCYCLE
     Route: 042
     Dates: start: 20151221

REACTIONS (14)
  - General physical health deterioration [None]
  - Hypomagnesaemia [None]
  - Muscular weakness [None]
  - Thrombocytopenia [None]
  - Toxic neuropathy [None]
  - Dyspnoea [None]
  - Pyrexia [None]
  - Gait disturbance [None]
  - Anaemia [None]
  - Febrile neutropenia [None]
  - Fatigue [Recovered/Resolved]
  - Diabetes mellitus inadequate control [None]
  - Urethral disorder [None]
  - White blood cell count decreased [None]

NARRATIVE: CASE EVENT DATE: 20160104
